FAERS Safety Report 25430926 (Version 1)
Quarter: 2025Q2

REPORT INFORMATION
  Report Type: Report from Study
  Country: US (occurrence: US)
  Receive Date: 20250612
  Receipt Date: 20250612
  Transmission Date: 20250716
  Serious: Yes (Other)
  Sender: ABBVIE
  Company Number: US-ABBVIE-6321661

PATIENT
  Age: 76 Year
  Sex: Female

DRUGS (1)
  1. SKYRIZI [Suspect]
     Active Substance: RISANKIZUMAB-RZAA
     Indication: Product used for unknown indication
     Route: 058
     Dates: start: 202401

REACTIONS (5)
  - Surgery [Recovering/Resolving]
  - Injection site haemorrhage [Recovered/Resolved]
  - Injection site discharge [Recovered/Resolved]
  - Post procedural complication [Unknown]
  - Device issue [Unknown]

NARRATIVE: CASE EVENT DATE: 20250101
